FAERS Safety Report 10990101 (Version 2)
Quarter: 2015Q3

REPORT INFORMATION
  Report Type: Spontaneous
  Country: CO (occurrence: CO)
  Receive Date: 20150406
  Receipt Date: 20150720
  Transmission Date: 20151125
  Serious: Yes (Death, Other)
  Sender: FDA-Public Use
  Company Number: CO-JNJFOC-20150321864

PATIENT
  Age: 85 Year
  Sex: Male
  Weight: 72 kg

DRUGS (1)
  1. ZYTIGA [Suspect]
     Active Substance: ABIRATERONE ACETATE
     Indication: PROSTATE CANCER
     Route: 048
     Dates: start: 20141014

REACTIONS (4)
  - Death [Fatal]
  - Inappropriate schedule of drug administration [Unknown]
  - Off label use [Unknown]
  - Haematemesis [Unknown]

NARRATIVE: CASE EVENT DATE: 20150319
